FAERS Safety Report 9887533 (Version 1)
Quarter: 2013Q4

REPORT INFORMATION
  Report Type: Spontaneous
  Country: US (occurrence: None)
  Receive Date: 20131223
  Receipt Date: 20131223
  Transmission Date: 20140711
  Serious: Yes (Other)
  Sender: FDA-Public Use
  Company Number: 220356

PATIENT
  Age: 58 Year
  Sex: Male

DRUGS (1)
  1. PICATO (0.015 %, GEL) [Suspect]
     Indication: ACTINIC KERATOSIS
     Dosage: GEL, DAILY, DERMAL
     Dates: start: 20121231, end: 20130102

REACTIONS (3)
  - Drug ineffective [None]
  - Drug administered at inappropriate site [None]
  - No adverse event [None]
